FAERS Safety Report 9246134 (Version 1)
Quarter: 2013Q2

REPORT INFORMATION
  Report Type: Spontaneous
  Country: US (occurrence: US)
  Receive Date: 20130422
  Receipt Date: 20130422
  Transmission Date: 20140414
  Serious: No
  Sender: FDA-Public Use
  Company Number: US-PFIZER INC-2013121425

PATIENT
  Age: 51 Year
  Sex: Female

DRUGS (19)
  1. XELJANZ [Suspect]
     Dosage: 5 MG, 1X/DAY
     Route: 048
     Dates: start: 201302
  2. FOSAMAX [Concomitant]
     Dosage: 70 MG, UNK
  3. PLAQUENIL [Concomitant]
     Dosage: 200 MG, UNK
  4. PREDNISONE [Concomitant]
     Dosage: 5 MG, UNK
  5. ATENOLOL [Concomitant]
     Dosage: 25 MG, UNK
  6. FENOFIBRATE [Concomitant]
     Dosage: 160 MG, UNK
  7. LISINOPRIL [Concomitant]
     Dosage: 10 MG, UNK
  8. CLORAZEPATE [Concomitant]
     Dosage: 7.5 MG, UNK
  9. OMEPRAZOLE [Concomitant]
     Dosage: 40 MG, UNK
  10. ALBUTEROL [Concomitant]
     Dosage: 0.083 %, UNK
  11. HYDROCODONE W/ACETAMINOPHEN [Concomitant]
     Dosage: UNK
  12. CELEXA [Concomitant]
     Dosage: 20 MG, UNK
  13. VITAMIN D3 [Concomitant]
     Dosage: 5000 IU, UNK
  14. CALCIUM WITH VITAMIN D [Concomitant]
     Dosage: UNK
  15. ELESTRIN [Concomitant]
     Dosage: 0.06 %, UNK
  16. ASPIRIN [Concomitant]
     Dosage: 81 MG, UNK
  17. FOLIC ACID [Concomitant]
     Dosage: 1000 UG, UNK
  18. FISH OIL [Concomitant]
     Dosage: 1000 MG, UNK
  19. POTASSIUM GLUCONATE [Concomitant]
     Dosage: 2 MEQ, UNK

REACTIONS (3)
  - Ear infection [Unknown]
  - Dizziness [Unknown]
  - Headache [Unknown]
